FAERS Safety Report 8422723-X (Version None)
Quarter: 2012Q2

REPORT INFORMATION
  Report Type: 
  Country: None (occurrence: None)
  Receive Date: 20120323
  Receipt Date: 20110920
  Transmission Date: 20120825
  Serious: Yes (Other)
  Sender: FDA-Public Use
  Company Number: 163-21880-11092598

PATIENT
  Sex: Male

DRUGS (4)
  1. REVLIMID [Suspect]
     Indication: PLASMACYTOSIS
     Dosage: 5 MG, 1 IN 1 D, PO, 10 MG, 1 IN 1 D, PO, 5MG-10MG, PO, 15 MG, 1 IN 1 D, PO
     Dates: start: 20100101
  2. REVLIMID [Suspect]
     Indication: PLASMACYTOSIS
     Dosage: 5 MG, 1 IN 1 D, PO, 10 MG, 1 IN 1 D, PO, 5MG-10MG, PO, 15 MG, 1 IN 1 D, PO
     Dates: start: 20110401
  3. REVLIMID [Suspect]
     Indication: PLASMACYTOSIS
     Dosage: 5 MG, 1 IN 1 D, PO, 10 MG, 1 IN 1 D, PO, 5MG-10MG, PO, 15 MG, 1 IN 1 D, PO
     Dates: start: 20101101
  4. REVLIMID [Suspect]
     Indication: PLASMACYTOSIS
     Dosage: 5 MG, 1 IN 1 D, PO, 10 MG, 1 IN 1 D, PO, 5MG-10MG, PO, 15 MG, 1 IN 1 D, PO
     Dates: start: 20090601

REACTIONS (1)
  - CEREBROVASCULAR ACCIDENT [None]
